APPROVED DRUG PRODUCT: ACETAMINOPHEN AND CODEINE PHOSPHATE
Active Ingredient: ACETAMINOPHEN; CODEINE PHOSPHATE
Strength: 300MG;30MG
Dosage Form/Route: TABLET;ORAL
Application: A086681 | Product #001
Applicant: PUREPAC PHARMACEUTICAL CO
Approved: Approved Prior to Jan 1, 1982 | RLD: Yes | RS: No | Type: DISCN